FAERS Safety Report 5859955-0 (Version None)
Quarter: 2008Q3

REPORT INFORMATION
  Report Type: 
  Country: None (occurrence: None)
  Receive Date: 20080827
  Receipt Date: 20080822
  Transmission Date: 20090109
  Serious: Yes (Other)
  Sender: FDA-Public Use
  Company Number: TR-ASTRAZENECA-2008SE04005

PATIENT
  Age: 33 Year
  Sex: Female

DRUGS (2)
  1. NEXIUM TB [Suspect]
     Indication: PEPTIC ULCER
     Route: 048
  2. NEXIUM TB [Suspect]
     Route: 048

REACTIONS (3)
  - ANGINA PECTORIS [None]
  - HYPOTENSION [None]
  - PALPITATIONS [None]
